FAERS Safety Report 13399940 (Version 3)
Quarter: 2019Q3

REPORT INFORMATION
  Report Type: Spontaneous
  Country: US (occurrence: US)
  Receive Date: 20170404
  Receipt Date: 20190822
  Transmission Date: 20191004
  Serious: Yes (Other)
  Sender: FDA-Public Use
  Company Number: US-LUPIN PHARMACEUTICALS INC.-E2B_00005315

PATIENT
  Age: 59 Year
  Sex: Female
  Weight: 68.04 kg

DRUGS (2)
  1. SERTRALINE HYDROCHLORIDE TABLETS USP, 50 MG [Suspect]
     Active Substance: SERTRALINE HYDROCHLORIDE
     Indication: MAJOR DEPRESSION
     Dosage: 50 MILLIGRAM, QD
     Route: 048
     Dates: start: 20190611, end: 20190719
  2. SERTRALINE HYDROCHLORIDE TABLETS USP, 100 MG [Suspect]
     Active Substance: SERTRALINE HYDROCHLORIDE
     Indication: MAJOR DEPRESSION
     Dosage: 100 MG,BID,
     Route: 048
     Dates: start: 2013, end: 20160412

REACTIONS (13)
  - Insomnia [Unknown]
  - Incontinence [Unknown]
  - Memory impairment [Unknown]
  - Rash generalised [Recovered/Resolved]
  - Asthenia [Unknown]
  - Fatigue [Unknown]
  - Pruritus generalised [Recovered/Resolved]
  - Constipation [Unknown]
  - Diarrhoea [Unknown]
  - Rash pruritic [Unknown]
  - Cough [Unknown]
  - Weight decreased [Unknown]
  - Chest discomfort [Unknown]

NARRATIVE: CASE EVENT DATE: 20160412
